FAERS Safety Report 15658835 (Version 3)
Quarter: 2019Q2

REPORT INFORMATION
  Report Type: Spontaneous
  Country: GB (occurrence: GB)
  Receive Date: 20181126
  Receipt Date: 20190619
  Transmission Date: 20190711
  Serious: Yes (Hospitalization)
  Sender: FDA-Public Use
  Company Number: GB-MYLANLABS-2017M1021730

PATIENT
  Age: 31 Year
  Sex: Male

DRUGS (2)
  1. CLOZARIL [Suspect]
     Active Substance: CLOZAPINE
     Dosage: UNK
     Route: 048
     Dates: start: 20190516
  2. CLOZARIL [Suspect]
     Active Substance: CLOZAPINE
     Indication: SCHIZOPHRENIA
     Dosage: UNK
     Route: 048
     Dates: start: 20170313, end: 20181110

REACTIONS (7)
  - Respiratory rate increased [Unknown]
  - Differential white blood cell count abnormal [Unknown]
  - Malaise [Unknown]
  - White blood cell count increased [Unknown]
  - Neutrophil count increased [Unknown]
  - Pyrexia [Recovering/Resolving]
  - Hospitalisation [Unknown]

NARRATIVE: CASE EVENT DATE: 20170405
